FAERS Safety Report 9518464 (Version 2)
Quarter: 2013Q3

REPORT INFORMATION
  Report Type: Report from Study
  Country: TR (occurrence: TR)
  Receive Date: 20130912
  Receipt Date: 20130912
  Transmission Date: 20140515
  Serious: Yes (Hospitalization)
  Sender: FDA-Public Use
  Company Number: TR-ROCHE-1264788

PATIENT
  Age: 58 Year
  Sex: Female
  Weight: 70 kg

DRUGS (9)
  1. RIBAVIRIN [Suspect]
     Indication: HEPATITIS C
     Route: 048
     Dates: start: 20130704
  2. ABT-450 (HCV PROTEASE INHIBITOR) [Suspect]
     Indication: HEPATITIS C
     Route: 048
     Dates: start: 20130704
  3. RITONAVIR [Suspect]
     Indication: HEPATITIS C
     Route: 048
     Dates: start: 20130704
  4. ABT-267 [Suspect]
     Indication: HEPATITIS C
     Route: 048
     Dates: start: 20130704
  5. ABT-333 (HCV POLYMERASE INHIBITOR) [Suspect]
     Indication: HEPATITIS C
     Route: 048
     Dates: start: 20130704
  6. LANSOR [Concomitant]
     Indication: HYPERTENSION
     Route: 065
     Dates: start: 2008
  7. OSMOLAX (LACTULOSE) [Concomitant]
     Route: 065
     Dates: start: 2012
  8. MONOPRIL PLUS [Concomitant]
     Route: 048
     Dates: start: 20130401
  9. ZYRTEC [Concomitant]
     Indication: PRURITUS
     Route: 048
     Dates: start: 20130712

REACTIONS (3)
  - Myalgia [Unknown]
  - Fatigue [Unknown]
  - Osteoarthritis [Unknown]
